FAERS Safety Report 14008217 (Version 1)
Quarter: 2017Q3

REPORT INFORMATION
  Report Type: Spontaneous
  Country: BR (occurrence: BR)
  Receive Date: 20170925
  Receipt Date: 20170925
  Transmission Date: 20171128
  Serious: Yes (Death, Other)
  Sender: FDA-Public Use
  Company Number: BR-BAYER-2017-177968

PATIENT
  Age: 50 Year
  Sex: Male

DRUGS (1)
  1. STIVARGA [Suspect]
     Active Substance: REGORAFENIB
     Indication: COLORECTAL CANCER METASTATIC
     Route: 048

REACTIONS (7)
  - Death [Fatal]
  - Fatigue [None]
  - Palmar-plantar erythrodysaesthesia syndrome [None]
  - Hepatic failure [None]
  - Off label use [None]
  - Product use in unapproved indication [None]
  - Rash [None]
